FAERS Safety Report 24129511 (Version 2)
Quarter: 2024Q3

REPORT INFORMATION
  Report Type: Spontaneous
  Country: AU (occurrence: AU)
  Receive Date: 20240723
  Receipt Date: 20240920
  Transmission Date: 20241017
  Serious: Yes (Other)
  Sender: SANDOZ
  Company Number: AU-TEVA-VS-3213044

PATIENT

DRUGS (3)
  1. ORPHENADRINE [Suspect]
     Active Substance: ORPHENADRINE
     Indication: Intentional overdose
     Dosage: 840 MG
     Route: 048
  2. QUETIAPINE FUMARATE [Suspect]
     Active Substance: QUETIAPINE FUMARATE
     Indication: Product used for unknown indication
     Dosage: 500 MG
     Route: 048
  3. TRAMADOL HYDROCHLORIDE [Suspect]
     Active Substance: TRAMADOL HYDROCHLORIDE
     Indication: Product used for unknown indication
     Dosage: 750 MG
     Route: 048

REACTIONS (4)
  - Toxicity to various agents [Unknown]
  - Poisoning deliberate [Unknown]
  - Tachycardia [Unknown]
  - Intentional overdose [Unknown]
